FAERS Safety Report 10016476 (Version 3)
Quarter: 2014Q2

REPORT INFORMATION
  Report Type: Report from Study
  Country: TR (occurrence: TR)
  Receive Date: 20140317
  Receipt Date: 20140613
  Transmission Date: 20141212
  Serious: Yes (Hospitalization)
  Sender: FDA-Public Use
  Company Number: TR-US-EMD SERONO, INC.-7275066

PATIENT
  Sex: Male
  Weight: 84 kg

DRUGS (5)
  1. REBIF [Suspect]
     Indication: MULTIPLE SCLEROSIS
  2. PAROL [Suspect]
     Indication: PAIN
  3. DOLOREX                            /00068902/ [Suspect]
     Indication: MUSCLE RELAXANT THERAPY
  4. FLOMAX                             /00889901/ [Suspect]
     Indication: PROSTATE TENDERNESS
  5. LUSTRAL [Suspect]
     Indication: DEPRESSION

REACTIONS (2)
  - Pneumonia [Recovering/Resolving]
  - Influenza [Recovering/Resolving]
